FAERS Safety Report 8203848-0 (Version None)
Quarter: 2012Q1

REPORT INFORMATION
  Report Type: 
  Country: None (occurrence: None)
  Receive Date: 20120308
  Receipt Date: 20120224
  Transmission Date: 20120608
  Serious: Yes (Hospitalization)
  Sender: FDA-Public Use
  Company Number: 2012SP010681

PATIENT
  Age: 33 Year
  Sex: Female
  Weight: 90 kg

DRUGS (2)
  1. MERCILON (DESOGESTREL/ETHINYLESTRADIOL /00570801/) [Suspect]
     Indication: PRODUCT USED FOR UNKNOWN INDICATION
     Dosage: UNK, PO
     Route: 048
     Dates: start: 19960101, end: 20010101
  2. MERCILON (DESOGESTREL/ETHINYLESTRADIOL /00570801/) [Suspect]
     Indication: PRODUCT USED FOR UNKNOWN INDICATION
     Dosage: UNK, PO
     Route: 048
     Dates: start: 20040101

REACTIONS (2)
  - APPENDICITIS [None]
  - INFERTILITY FEMALE [None]
